FAERS Safety Report 5652040-2 (Version None)
Quarter: 2008Q1

REPORT INFORMATION
  Report Type: 
  Country: None (occurrence: None)
  Receive Date: 20080131
  Receipt Date: 20071106
  Transmission Date: 20080703
  Serious: No
  Sender: FDA-Public Use
  Company Number: US200711001711

PATIENT
  Age: 56 Year
  Sex: Female

DRUGS (3)
  1. BYETTA [Suspect]
     Indication: DIABETES MELLITUS
     Dosage: 5 UG, EACH EVENING, SUBCUTANEOUS
     Route: 058
     Dates: start: 20071102
  2. EXENATIDE 5MCG PEN, DISPOSABLE DEVICE (EXENATIDE PEN (5MCG)) PEN,DISPO [Concomitant]
  3. METFORMIN HCL [Concomitant]

REACTIONS (4)
  - CHILLS [None]
  - NAUSEA [None]
  - TREMOR [None]
  - VOMITING [None]
